FAERS Safety Report 8337892-X (Version None)
Quarter: 2012Q2

REPORT INFORMATION
  Report Type: 
  Country: None (occurrence: None)
  Receive Date: 20120504
  Receipt Date: 20120426
  Transmission Date: 20120825
  Serious: Yes (Other)
  Sender: FDA-Public Use
  Company Number: JP-ASTRAZENECA-2012SE27860

PATIENT
  Age: 71 Year
  Sex: Male

DRUGS (3)
  1. SERTRALINE HYDROCHLORIDE [Concomitant]
     Route: 065
  2. DEPAS [Concomitant]
     Route: 065
  3. SEROQUEL [Suspect]
     Indication: DELIRIUM
     Route: 048

REACTIONS (3)
  - HYPOGLYCAEMIA [None]
  - LOSS OF CONSCIOUSNESS [None]
  - OFF LABEL USE [None]
